FAERS Safety Report 7511229-8 (Version None)
Quarter: 2011Q2

REPORT INFORMATION
  Report Type: 
  Country: None (occurrence: None)
  Receive Date: 20110531
  Receipt Date: 20110523
  Transmission Date: 20111010
  Serious: Yes (Hospitalization)
  Sender: FDA-Public Use
  Company Number: US-JNJFOC-20110511399

PATIENT
  Sex: Female
  Weight: 70.31 kg

DRUGS (4)
  1. LEVAQUIN [Suspect]
     Indication: PNEUMONIA
     Route: 048
     Dates: start: 20110421, end: 20110501
  2. LEVAQUIN [Suspect]
     Indication: SINUS DISORDER
     Route: 048
  3. LEVAQUIN [Suspect]
     Route: 048
  4. LEVAQUIN [Suspect]
     Route: 048
     Dates: start: 20110421, end: 20110501

REACTIONS (4)
  - SINUSITIS [None]
  - TENDON PAIN [None]
  - WEIGHT INCREASED [None]
  - BREAST CANCER [None]
